FAERS Safety Report 11332358 (Version 1)
Quarter: 2015Q3

REPORT INFORMATION
  Report Type: Spontaneous
  Country: US (occurrence: US)
  Receive Date: 20150803
  Receipt Date: 20150803
  Transmission Date: 20151125
  Serious: No
  Sender: FDA-Public Use
  Company Number: US-ELI_LILLY_AND_COMPANY-US200808005160

PATIENT
  Sex: Male

DRUGS (1)
  1. ZYPREXA ZYDIS [Suspect]
     Active Substance: OLANZAPINE
     Indication: BIPOLAR DISORDER
     Dosage: 10 MG, UNK
     Dates: start: 20080820

REACTIONS (10)
  - Lip dry [Unknown]
  - Insomnia [Unknown]
  - Nervousness [Unknown]
  - Dizziness [Unknown]
  - Dry mouth [Unknown]
  - Polyuria [Unknown]
  - Vision blurred [Unknown]
  - Anxiety [Unknown]
  - Depression [Unknown]
  - Circadian rhythm sleep disorder [Unknown]

NARRATIVE: CASE EVENT DATE: 20080824
